FAERS Safety Report 24570671 (Version 2)
Quarter: 2025Q3

REPORT INFORMATION
  Report Type: Spontaneous
  Country: CN (occurrence: CN)
  Receive Date: 20241031
  Receipt Date: 20250810
  Transmission Date: 20251021
  Serious: Yes (Hospitalization)
  Sender: ALEXION PHARMACEUTICALS
  Company Number: CN-ASTRAZENECA-202409CHN003428CN

PATIENT
  Age: 48 Year
  Sex: Male
  Weight: 70 kg

DRUGS (1)
  1. KOMBIGLYZE XR [Suspect]
     Active Substance: METFORMIN HYDROCHLORIDE\SAXAGLIPTIN HYDROCHLORIDE
     Indication: Type 2 diabetes mellitus
     Dosage: 1 GRAM, QD
     Dates: start: 20240908, end: 20240915

REACTIONS (5)
  - Nausea [Recovering/Resolving]
  - Vomiting [Recovering/Resolving]
  - Dizziness [Recovering/Resolving]
  - Vision blurred [Recovering/Resolving]
  - Urinary tract infection [Recovering/Resolving]

NARRATIVE: CASE EVENT DATE: 20240912
